FAERS Safety Report 18139113 (Version 1)
Quarter: 2020Q3

REPORT INFORMATION
  Report Type: Spontaneous
  Country: ES (occurrence: ES)
  Receive Date: 20200812
  Receipt Date: 20200812
  Transmission Date: 20201103
  Serious: Yes (Other)
  Sender: FDA-Public Use
  Company Number: NVSC2020ES219948

PATIENT
  Age: 59 Year
  Sex: Female

DRUGS (1)
  1. DICLOFENAC [Suspect]
     Active Substance: DICLOFENAC
     Indication: BACK PAIN
     Dosage: 50 MG, Q8H
     Route: 048
     Dates: start: 20200524, end: 20200525

REACTIONS (5)
  - Pruritus [Recovered/Resolved]
  - Larynx irritation [Recovered/Resolved]
  - Swollen tongue [Recovered/Resolved]
  - Glossodynia [Recovered/Resolved]
  - Sensation of foreign body [Recovered/Resolved]

NARRATIVE: CASE EVENT DATE: 20200525
